FAERS Safety Report 5253910-X (Version None)
Quarter: 2007Q1

REPORT INFORMATION
  Report Type: 
  Country: None (occurrence: None)
  Receive Date: 20070228
  Receipt Date: 20070228
  Transmission Date: 20070707
  Serious: No
  Sender: FDA-Public Use
  Company Number: None

PATIENT
  Age: 43 Year
  Sex: Female
  Weight: 84.8226 kg

DRUGS (1)
  1. AMBIEN [Suspect]
     Indication: INSOMNIA
     Dosage: 5 MG 1 TAB HS ORAL
     Route: 048
     Dates: start: 20070212

REACTIONS (2)
  - EARLY MORNING AWAKENING [None]
  - TINNITUS [None]
